FAERS Safety Report 8508546-1 (Version None)
Quarter: 2012Q3

REPORT INFORMATION
  Report Type: 
  Country: None (occurrence: None)
  Receive Date: 20120713
  Receipt Date: 20120711
  Transmission Date: 20120928
  Serious: No
  Sender: FDA-Public Use
  Company Number: US-PFIZER INC-2012166605

PATIENT
  Sex: Male
  Weight: 127 kg

DRUGS (5)
  1. POTASSIUM CHLORIDE [Concomitant]
     Dosage: UNK
  2. AMLODIPINE BESYLATE AND BENAZEPRIL HCL [Concomitant]
     Dosage: UNK
  3. XANAX [Suspect]
     Dosage: 1 MG, 2X/DAY
     Dates: start: 20090101
  4. DULOXETINE HYDROCHLORIDE [Concomitant]
     Dosage: UNK
  5. LASIX [Suspect]
     Indication: HYPERTENSION
     Dosage: UNK
     Dates: start: 20110101

REACTIONS (1)
  - DRUG SCREEN NEGATIVE [None]
